FAERS Safety Report 7127935-3 (Version None)
Quarter: 2010Q4

REPORT INFORMATION
  Report Type: 
  Country: None (occurrence: None)
  Receive Date: 20101130
  Receipt Date: 20101116
  Transmission Date: 20110411
  Serious: Yes (Other)
  Sender: FDA-Public Use
  Company Number: DE-RANBAXY-2010RR-39631

PATIENT
  Age: 50 Year
  Sex: Female

DRUGS (6)
  1. IBUPROFEN [Suspect]
     Indication: TOOTHACHE
     Dosage: 400 MG, UNK
     Route: 048
  2. NEBIVOLOL [Concomitant]
  3. ANTELEPSIN [Concomitant]
  4. VENLAFAXINE HCL [Concomitant]
  5. ZOLPIDEM [Concomitant]
  6. TAVOR [Concomitant]

REACTIONS (1)
  - INTESTINAL HAEMORRHAGE [None]
